FAERS Safety Report 6837111-7 (Version None)
Quarter: 2010Q3

REPORT INFORMATION
  Report Type: 
  Country: None (occurrence: None)
  Receive Date: 20100713
  Receipt Date: 20070503
  Transmission Date: 20110219
  Serious: No
  Sender: FDA-Public Use
  Company Number: US-PFIZER INC-2007037723

PATIENT
  Sex: Female
  Weight: 55.909 kg

DRUGS (10)
  1. CHANTIX [Suspect]
     Indication: SMOKING CESSATION THERAPY
     Dates: start: 20070429
  2. ALL OTHER THERAPEUTIC PRODUCTS [Concomitant]
  3. PRILOSEC [Concomitant]
  4. MELOXICAM [Concomitant]
  5. LIPITOR [Concomitant]
  6. VITAMINS [Concomitant]
  7. ACTONEL [Concomitant]
  8. FEXOFENADINE [Concomitant]
  9. MIACALCIN [Concomitant]
  10. FLEXERIL [Concomitant]

REACTIONS (2)
  - NAUSEA [None]
  - VOMITING [None]
